FAERS Safety Report 10108877 (Version 1)
Quarter: 2014Q2

REPORT INFORMATION
  Report Type: Spontaneous
  Country: BR (occurrence: BR)
  Receive Date: 20140425
  Receipt Date: 20140425
  Transmission Date: 20141212
  Serious: Yes (Other)
  Sender: FDA-Public Use
  Company Number: BR-ELI_LILLY_AND_COMPANY-BR201404008027

PATIENT
  Sex: Female
  Weight: 66 kg

DRUGS (1)
  1. EVISTA [Suspect]
     Indication: PRODUCT USED FOR UNKNOWN INDICATION
     Dosage: UNK, UNKNOWN
     Route: 065

REACTIONS (6)
  - Weight decreased [Recovered/Resolved]
  - Gastric disorder [Unknown]
  - Emotional disorder [Unknown]
  - Osteoporosis [Unknown]
  - Osteoarthritis [Unknown]
  - Decreased appetite [Unknown]
